FAERS Safety Report 7051208-0 (Version None)
Quarter: 2010Q4

REPORT INFORMATION
  Report Type: 
  Country: None (occurrence: None)
  Receive Date: 20101014
  Receipt Date: 20101004
  Transmission Date: 20110411
  Serious: Yes (Other)
  Sender: FDA-Public Use
  Company Number: AVE_02003_2010

PATIENT
  Sex: Female

DRUGS (2)
  1. CLONIDINE [Suspect]
     Indication: HYPERTENSION
     Dosage: 0.2 MG QD, VIA 1 WEEKLY PATCH TRANSDERMAL
     Route: 062
     Dates: start: 20100701
  2. ARICEPT [Concomitant]

REACTIONS (2)
  - HALLUCINATION, AUDITORY [None]
  - MIDDLE INSOMNIA [None]
